FAERS Safety Report 12329218 (Version 4)
Quarter: 2017Q2

REPORT INFORMATION
  Report Type: Report from Study
  Country: JP (occurrence: JP)
  Receive Date: 20160503
  Receipt Date: 20170602
  Transmission Date: 20170830
  Serious: Yes (Hospitalization, Other)
  Sender: FDA-Public Use
  Company Number: JP-INCYTE CORPORATION-2014IN003802

PATIENT

DRUGS (17)
  1. JAKAVI [Suspect]
     Active Substance: RUXOLITINIB
     Dosage: 7.5 MG, BID
     Route: 048
     Dates: start: 20151024, end: 20151111
  2. PRIMOBOLAN-DEPOT [Concomitant]
     Active Substance: METHENOLONE ENANTHATE
     Indication: MYELOFIBROSIS
     Dosage: 10 MG, UNK
     Route: 048
     Dates: start: 201211
  3. IRRADIATED FROZEN THAWED RED CELLS [Concomitant]
     Indication: PRIMARY MYELOFIBROSIS
  4. EXJADE [Concomitant]
     Active Substance: DEFERASIROX
     Indication: SERUM FERRITIN INCREASED
  5. PLATELETS [Concomitant]
     Active Substance: HUMAN PLATELET, ALLOGENIC
     Indication: MYELOFIBROSIS
     Dosage: UNK
     Route: 065
     Dates: start: 20151118, end: 20151118
  6. JAKAVI [Suspect]
     Active Substance: RUXOLITINIB
     Dosage: 5 MG, BID
     Route: 048
     Dates: start: 20151008, end: 20151023
  7. JAKAVI [Suspect]
     Active Substance: RUXOLITINIB
     Dosage: 5 MG, BID
     Route: 048
     Dates: start: 20151112, end: 20151118
  8. IRRADIATED FROZEN THAWED RED CELLS [Concomitant]
     Indication: ANAEMIA
     Dosage: 2 IU, UNK
     Route: 065
     Dates: start: 20151110, end: 20151110
  9. JAKAVI [Suspect]
     Active Substance: RUXOLITINIB
     Indication: PRIMARY MYELOFIBROSIS
     Dosage: 10 MG, QD
     Route: 048
     Dates: start: 20141117, end: 20141203
  10. JAKAVI [Suspect]
     Active Substance: RUXOLITINIB
     Dosage: 10 MG, QD
     Route: 048
     Dates: start: 20150226
  11. EXJADE [Concomitant]
     Active Substance: DEFERASIROX
     Indication: MYELOFIBROSIS
     Dosage: UNK
     Route: 048
     Dates: start: 20150109, end: 20150909
  12. PLATELETS [Concomitant]
     Active Substance: HUMAN PLATELET, ALLOGENIC
     Indication: PRIMARY MYELOFIBROSIS
  13. JAKAVI [Suspect]
     Active Substance: RUXOLITINIB
     Dosage: 5 MG, QD
     Route: 048
     Dates: start: 20150904, end: 20151007
  14. JAKAVI [Suspect]
     Active Substance: RUXOLITINIB
     Dosage: 5 MG, QD
     Route: 048
     Dates: start: 20141204, end: 20150225
  15. IRRADIATED FROZEN THAWED RED CELLS [Concomitant]
     Indication: MYELOFIBROSIS
     Dosage: 2 IU, UNK
     Route: 065
     Dates: start: 20121005
  16. EXJADE [Concomitant]
     Active Substance: DEFERASIROX
     Indication: PRIMARY MYELOFIBROSIS
  17. PREDNISOLONE. [Concomitant]
     Active Substance: PREDNISOLONE
     Indication: MYELOFIBROSIS
     Dosage: 20 MG, UNK
     Route: 048
     Dates: start: 201211

REACTIONS (4)
  - Platelet count decreased [Not Recovered/Not Resolved]
  - Anaemia [Not Recovered/Not Resolved]
  - Malaise [Recovered/Resolved]
  - Platelet count decreased [Recovered/Resolved]

NARRATIVE: CASE EVENT DATE: 20141204
